FAERS Safety Report 16106862 (Version 2)
Quarter: 2019Q1

REPORT INFORMATION
  Report Type: Spontaneous
  Country: ES (occurrence: ES)
  Receive Date: 20190322
  Receipt Date: 20190326
  Transmission Date: 20190418
  Serious: Yes (Other)
  Sender: FDA-Public Use
  Company Number: ES-PFIZER INC-2019121716

PATIENT
  Age: 40 Year
  Sex: Male

DRUGS (6)
  1. TENOXICAM [Suspect]
     Active Substance: TENOXICAM
     Indication: PSORIASIS
     Dosage: 10 MG, UNK
     Route: 048
  2. PIROXICAM. [Suspect]
     Active Substance: PIROXICAM
     Indication: PSORIASIS
     Dosage: 5 MG, UNK
     Route: 048
  3. TENOXICAM [Suspect]
     Active Substance: TENOXICAM
     Indication: SPINAL OSTEOARTHRITIS
  4. PIROXICAM. [Suspect]
     Active Substance: PIROXICAM
     Indication: SPINAL OSTEOARTHRITIS
  5. DROXICAM [Suspect]
     Active Substance: DROXICAM
     Indication: PSORIASIS
     Dosage: 5 MG, UNK
  6. DROXICAM [Suspect]
     Active Substance: DROXICAM
     Indication: SPINAL OSTEOARTHRITIS

REACTIONS (2)
  - Fixed eruption [Not Recovered/Not Resolved]
  - Therapeutic product cross-reactivity [Unknown]
